FAERS Safety Report 12535832 (Version 1)
Quarter: 2016Q3

REPORT INFORMATION
  Report Type: Spontaneous
  Country: US (occurrence: US)
  Receive Date: 20160707
  Receipt Date: 20160707
  Transmission Date: 20161109
  Serious: Yes (Other)
  Sender: FDA-Public Use
  Company Number: US-ACTAVIS-2016-14618

PATIENT
  Age: 32 Year
  Sex: Female

DRUGS (1)
  1. PACLITAXEL (ATLLC) [Suspect]
     Active Substance: PACLITAXEL
     Indication: ANGIOSARCOMA
     Dosage: UNK, CYCLICAL
     Route: 065

REACTIONS (1)
  - Hepatocellular injury [Not Recovered/Not Resolved]
